FAERS Safety Report 11197030 (Version 1)
Quarter: 2015Q2

REPORT INFORMATION
  Report Type: Spontaneous
  Country: US (occurrence: US)
  Receive Date: 20150617
  Receipt Date: 20150617
  Transmission Date: 20150821
  Serious: Yes (Hospitalization, Disabling, Other)
  Sender: FDA-Public Use
  Company Number: US-009507513-1204USA00475

PATIENT
  Sex: Female

DRUGS (6)
  1. BONIVA [Suspect]
     Active Substance: IBANDRONATE SODIUM
     Indication: OSTEOPENIA
     Dosage: 150 MG, QM
     Route: 048
     Dates: start: 200807, end: 201109
  2. MELOXICAM. [Concomitant]
     Active Substance: MELOXICAM
     Indication: RHEUMATOID ARTHRITIS
     Dosage: UNK
     Dates: start: 2002
  3. HYDROXYCHLOROQUINE SULFATE. [Concomitant]
     Active Substance: HYDROXYCHLOROQUINE SULFATE
     Indication: RHEUMATOID ARTHRITIS
     Dosage: UNK
     Dates: start: 2002
  4. ACTONEL [Suspect]
     Active Substance: RISEDRONATE SODIUM
     Indication: OSTEOPENIA
     Dosage: 35 MG, QW
     Route: 048
     Dates: start: 200510, end: 200806
  5. OMEPRAZOLE. [Concomitant]
     Active Substance: OMEPRAZOLE
     Indication: PRODUCT USED FOR UNKNOWN INDICATION
     Dosage: UNK
     Dates: start: 2002
  6. MK-0000 (111) [Suspect]
     Active Substance: INVESTIGATIONAL PRODUCT
     Dosage: UNK
     Route: 048
     Dates: start: 2004, end: 2011

REACTIONS (11)
  - Vitamin D deficiency [Unknown]
  - Femur fracture [Unknown]
  - Gallbladder operation [Unknown]
  - Osteoporosis [Unknown]
  - Low turnover osteopathy [Unknown]
  - Hypertension [Unknown]
  - Femur fracture [Unknown]
  - Pain in extremity [Unknown]
  - Foot fracture [Unknown]
  - Balance disorder [Unknown]
  - Arthralgia [Unknown]

NARRATIVE: CASE EVENT DATE: 2005
